FAERS Safety Report 7166830-0 (Version None)
Quarter: 2010Q4

REPORT INFORMATION
  Report Type: 
  Country: None (occurrence: None)
  Receive Date: 20101216
  Receipt Date: 20101213
  Transmission Date: 20110411
  Serious: Yes (Death)
  Sender: FDA-Public Use
  Company Number: IT-ROCHE-748168

PATIENT
  Sex: Male

DRUGS (3)
  1. AVASTIN [Suspect]
     Indication: RENAL CANCER METASTATIC
     Dosage: FREQUENCY: CYCLE.
     Route: 042
     Dates: start: 20090508, end: 20100728
  2. ROFERON-A [Suspect]
     Indication: RENAL CANCER METASTATIC
     Dosage: FREQUENCY: EVERY OTHER DAY.
     Route: 058
     Dates: start: 20090508, end: 20100728
  3. TRIATEC [Concomitant]
     Route: 048

REACTIONS (1)
  - ACUTE PROMYELOCYTIC LEUKAEMIA [None]
